FAERS Safety Report 15551238 (Version 2)
Quarter: 2018Q4

REPORT INFORMATION
  Report Type: Report from Study
  Country: CA (occurrence: CA)
  Receive Date: 20181025
  Receipt Date: 20181106
  Transmission Date: 20190205
  Serious: Yes (Other)
  Sender: FDA-Public Use
  Company Number: CA-ROCHE-2182445

PATIENT
  Sex: Male
  Weight: 122.47 kg

DRUGS (12)
  1. PREDNISONE. [Concomitant]
     Active Substance: PREDNISONE
  2. PANTOLOC [Concomitant]
     Active Substance: PANTOPRAZOLE SODIUM
  3. ACTEMRA [Suspect]
     Active Substance: TOCILIZUMAB
     Indication: ACUTE FEBRILE NEUTROPHILIC DERMATOSIS
     Route: 058
     Dates: start: 20170705, end: 20180402
  4. RITALIN [Concomitant]
     Active Substance: METHYLPHENIDATE HYDROCHLORIDE
  5. ACTEMRA [Suspect]
     Active Substance: TOCILIZUMAB
     Dosage: (FILE RE-ACTIVATION)
     Route: 058
     Dates: start: 201809
  6. ALLOPURINOL. [Concomitant]
     Active Substance: ALLOPURINOL
  7. XARELTO [Concomitant]
     Active Substance: RIVAROXABAN
  8. ACTEMRA [Suspect]
     Active Substance: TOCILIZUMAB
     Route: 058
     Dates: start: 20180914, end: 20181006
  9. ACTEMRA [Suspect]
     Active Substance: TOCILIZUMAB
     Indication: ACUTE FEBRILE NEUTROPHILIC DERMATOSIS
     Dosage: PENDING RE-START, ONGOING
     Route: 042
     Dates: start: 20180208
  10. RITUXAN [Suspect]
     Active Substance: RITUXIMAB
     Indication: LYMPHOMA
     Route: 065
     Dates: end: 2016
  11. LISINOPRIL. [Concomitant]
     Active Substance: LISINOPRIL
  12. METHOTREXATE. [Concomitant]
     Active Substance: METHOTREXATE

REACTIONS (9)
  - Product prescribing error [Unknown]
  - Drug ineffective [Unknown]
  - Joint injury [Unknown]
  - Skin disorder [Unknown]
  - Weight decreased [Unknown]
  - Interleukin level increased [Unknown]
  - Drug effect decreased [Unknown]
  - Hypogammaglobulinaemia [Unknown]
  - Weight increased [Unknown]

NARRATIVE: CASE EVENT DATE: 2018
